FAERS Safety Report 25949517 (Version 1)
Quarter: 2025Q4

REPORT INFORMATION
  Report Type: Spontaneous
  Country: EU (occurrence: EU)
  Receive Date: 20251022
  Receipt Date: 20251022
  Transmission Date: 20260118
  Serious: Yes (Life-Threatening)
  Sender: ELI LILLY AND COMPANY
  Company Number: None

PATIENT
  Age: 61 Year
  Sex: Male
  Weight: 124 kg

DRUGS (5)
  1. ERBITUX [Suspect]
     Active Substance: CETUXIMAB
     Indication: Colon cancer
     Dosage: 932 MG, UNKNOWN
     Route: 042
     Dates: start: 20210920, end: 20211004
  2. FLUOROURACIL [Suspect]
     Active Substance: FLUOROURACIL
     Indication: Colon cancer
     Dosage: 2236.8 MG, UNKNOWN
     Route: 042
     Dates: start: 20210920, end: 20211004
  3. FLUOROURACIL [Suspect]
     Active Substance: FLUOROURACIL
     Dosage: 236.8 MG, UNKNOWN
     Route: 040
     Dates: start: 20210920, end: 20211004
  4. LEUCOVORIN CALCIUM [Suspect]
     Active Substance: LEUCOVORIN CALCIUM
     Indication: Colon cancer
     Dosage: 372.8 MG, UNKNOWN
     Route: 042
     Dates: start: 20210920, end: 20211004
  5. IRINOTECAN [Suspect]
     Active Substance: IRINOTECAN
     Indication: Colon cancer
     Dosage: 335.5 MG, UNKNOWN
     Route: 042
     Dates: start: 20210920, end: 20211004

REACTIONS (4)
  - Neutropenia [Unknown]
  - Thrombocytopenia [Unknown]
  - Diarrhoea [Unknown]
  - Asthenia [Unknown]

NARRATIVE: CASE EVENT DATE: 20211004
